FAERS Safety Report 9562027 (Version 1)
Quarter: 2013Q3

REPORT INFORMATION
  Report Type: Spontaneous
  Country: BR (occurrence: None)
  Receive Date: 20130925
  Receipt Date: 20130925
  Transmission Date: 20140515
  Serious: Yes (Hospitalization, Other)
  Sender: FDA-Public Use
  Company Number: GER/BRA/13/0034589

PATIENT
  Sex: Male

DRUGS (7)
  1. CLOPIDOGREL [Suspect]
     Indication: ANTIPLATELET THERAPY
     Dosage: 75 MG, 1 IN 1 D, UNKNOWN
     Dates: start: 2010, end: 20130819
  2. ATENOLOL [Suspect]
     Indication: PRODUCT USED FOR UNKNOWN INDICATION
     Dosage: UNKNOWN
     Dates: start: 2010, end: 20130723
  3. SELOZOK [Suspect]
     Indication: PRODUCT USED FOR UNKNOWN INDICATION
     Dosage: 50 MG, 1 IN 1 D, ORAL
     Route: 048
     Dates: start: 20130724
  4. BRILINTA [Suspect]
     Indication: ANTIPLATELET THERAPY
     Dosage: 90 MG, 2 IN 1 D, ORAL
     Route: 048
     Dates: start: 20130819
  5. ENALAPRIL [Suspect]
     Indication: PRODUCT USED FOR UNKNOWN INDICATION
     Dosage: 5 MG, 1 IN 1 D
     Dates: start: 20130724, end: 20130829
  6. ASA (ACETYLSALICYLIC ACID) [Suspect]
     Indication: PRODUCT USED FOR UNKNOWN INDICATION
     Dates: start: 2010
  7. PANTOPRAZOLE (PANTOPRAZOLE) [Concomitant]

REACTIONS (4)
  - Myocardial infarction [None]
  - Platelet aggregation decreased [None]
  - Thrombosis [None]
  - Dysgeusia [None]
